FAERS Safety Report 20907651 (Version 3)
Quarter: 2022Q3

REPORT INFORMATION
  Report Type: Report from Study
  Country: GB (occurrence: None)
  Receive Date: 20220602
  Receipt Date: 20220715
  Transmission Date: 20221027
  Serious: No
  Sender: FDA-Public Use
  Company Number: GB-Merck Healthcare KGaA-9325942

PATIENT
  Age: 64 Year
  Sex: Female

DRUGS (3)
  1. MAVENCLAD [Suspect]
     Active Substance: CLADRIBINE
     Indication: Multiple sclerosis
     Dosage: YEAR ONE WEEK ONE THERAPY. 2 TABLETS ON DAYS 1 TO 3 AND 1 TABLET ON DAYS 4 AND 5
     Route: 048
     Dates: start: 20210524
  2. MAVENCLAD [Suspect]
     Active Substance: CLADRIBINE
     Dosage: YEAR ONE WEEK TWO THERAPY: 2 TABLETS ON DAYS 1 TO 2 AND 1 TABLET ON DAYS 3 TO 5.
     Route: 048
     Dates: end: 20210625
  3. MAVENCLAD [Suspect]
     Active Substance: CLADRIBINE
     Dosage: YEAR TWO WEEK ONE THERAPY. AT A PRESCRIBED DOSE OF 2 TABLETS ON DAYS 1 TO 4 AND 1 TABLET ON DAY 5
     Route: 048
     Dates: start: 20220523

REACTIONS (8)
  - Gastritis [Unknown]
  - Fibrin D dimer increased [Not Recovered/Not Resolved]
  - Amylase increased [Unknown]
  - Abdominal discomfort [Unknown]
  - Oedema peripheral [Unknown]
  - Nausea [Unknown]
  - Lymphocyte count decreased [Unknown]
  - Headache [Unknown]

NARRATIVE: CASE EVENT DATE: 20220524
